FAERS Safety Report 6357092-2 (Version None)
Quarter: 2009Q3

REPORT INFORMATION
  Report Type: 
  Country: None (occurrence: None)
  Receive Date: 20090915
  Receipt Date: 20090904
  Transmission Date: 20100115
  Serious: Yes (Death, Hospitalization, Other)
  Sender: FDA-Public Use
  Company Number: US-ELI_LILLY_AND_COMPANY-US200909001288

PATIENT
  Age: 39 Year
  Sex: Male

DRUGS (1)
  1. EFFIENT [Suspect]
     Indication: MYOCARDIAL INFARCTION
     Dosage: 60 MG, UNK
     Dates: start: 20090801, end: 20090801

REACTIONS (3)
  - ASPHYXIA [None]
  - BRAIN DEATH [None]
  - MEDICATION ERROR [None]
